FAERS Safety Report 13662545 (Version 2)
Quarter: 2017Q3

REPORT INFORMATION
  Report Type: Spontaneous
  Country: US (occurrence: US)
  Receive Date: 20170617
  Receipt Date: 20170720
  Transmission Date: 20171127
  Serious: No
  Sender: FDA-Public Use
  Company Number: US-009507513-1705USA013176

PATIENT
  Sex: Female

DRUGS (2)
  1. NUVARING [Suspect]
     Active Substance: ETHINYL ESTRADIOL\ETONOGESTREL
     Dosage: 1 RING INSERTED IN THE VAGINA EVERY 30 DAYS. STRENGTH 0.015/0.12
     Route: 067
     Dates: end: 20170510
  2. NUVARING [Suspect]
     Active Substance: ETHINYL ESTRADIOL\ETONOGESTREL
     Dosage: 1 RING INSERTED IN THE VAGINA EVERY 30 DAYS. STRENGTH 0.015/0.12
     Route: 067
     Dates: start: 201705

REACTIONS (3)
  - Product quality issue [Unknown]
  - Device expulsion [Recovered/Resolved]
  - Drug dose omission [Unknown]

NARRATIVE: CASE EVENT DATE: 20170511
